FAERS Safety Report 6138366-7 (Version None)
Quarter: 2009Q1

REPORT INFORMATION
  Report Type: 
  Country: None (occurrence: None)
  Receive Date: 20090331
  Receipt Date: 20090319
  Transmission Date: 20090719
  Serious: Yes (Disabling)
  Sender: FDA-Public Use
  Company Number: GB-PFIZER INC-2009186819

PATIENT

DRUGS (3)
  1. PREGABALIN [Suspect]
     Indication: TRIGEMINAL NEURALGIA
     Route: 048
     Dates: start: 20050901, end: 20060401
  2. CITALOPRAM [Concomitant]
  3. NULYTELY [Concomitant]

REACTIONS (4)
  - MOBILITY DECREASED [None]
  - MUSCLE SWELLING [None]
  - MYALGIA [None]
  - PAIN IN EXTREMITY [None]
